FAERS Safety Report 24693673 (Version 1)
Quarter: 2024Q4

REPORT INFORMATION
  Report Type: Spontaneous
  Country: SA (occurrence: SA)
  Receive Date: 20241204
  Receipt Date: 20241204
  Transmission Date: 20250114
  Serious: No
  Sender: ALKEM
  Company Number: SA-ALKEM LABORATORIES LIMITED-SA-ALKEM-2024-24609

PATIENT
  Age: 59 Year
  Sex: Female
  Weight: 52.8 kg

DRUGS (2)
  1. VANCOMYCIN [Suspect]
     Active Substance: VANCOMYCIN
     Indication: Staphylococcal infection
     Dosage: UNK
     Route: 042
  2. VANCOMYCIN [Suspect]
     Active Substance: VANCOMYCIN
     Indication: Haematological infection

REACTIONS (1)
  - Treatment failure [Unknown]
